FAERS Safety Report 10762808 (Version 2)
Quarter: 2015Q3

REPORT INFORMATION
  Report Type: Spontaneous
  Country: US (occurrence: US)
  Receive Date: 20150204
  Receipt Date: 20150706
  Transmission Date: 20151125
  Serious: Yes (Hospitalization, Other)
  Sender: FDA-Public Use
  Company Number: US-PFIZER INC-2015044956

PATIENT
  Age: 62 Year
  Sex: Male

DRUGS (5)
  1. TESTOSTERONE ENANTHATE. [Suspect]
     Active Substance: TESTOSTERONE ENANTHATE
     Indication: HORMONE REPLACEMENT THERAPY
     Dosage: UNK, (ONCE EVERY 2 WEEKS)
     Dates: start: 201201, end: 201301
  2. DEPO-TESTOSTERONE [Suspect]
     Active Substance: TESTOSTERONE CYPIONATE
     Indication: BLOOD TESTOSTERONE DECREASED
     Dosage: 200MG/ML, AS DIRECTED
     Dates: start: 201209, end: 201302
  3. DEPO-TESTOSTERONE [Suspect]
     Active Substance: TESTOSTERONE CYPIONATE
     Indication: HORMONE REPLACEMENT THERAPY
  4. DEPO-TESTOSTERONE [Suspect]
     Active Substance: TESTOSTERONE CYPIONATE
     Indication: ERECTILE DYSFUNCTION
  5. TESTOSTERONE ENANTHATE. [Suspect]
     Active Substance: TESTOSTERONE ENANTHATE
     Indication: ERECTILE DYSFUNCTION

REACTIONS (4)
  - Fluid retention [Unknown]
  - Myocardial infarction [Unknown]
  - Cardio-respiratory arrest [Unknown]
  - Thrombosis [Unknown]

NARRATIVE: CASE EVENT DATE: 201302
